FAERS Safety Report 8300458-1 (Version None)
Quarter: 2012Q2

REPORT INFORMATION
  Report Type: 
  Country: None (occurrence: None)
  Receive Date: 20120420
  Receipt Date: 20120406
  Transmission Date: 20120825
  Serious: Yes (Other)
  Sender: FDA-Public Use
  Company Number: US-ENDO PHARMACEUTICALS INC.-ENDC20120023

PATIENT
  Sex: Female

DRUGS (1)
  1. OXYCODONE AND ACETAMINOPHEN [Suspect]
     Indication: PAIN
     Dosage: 80/2600 MG
     Route: 048
     Dates: start: 20090101, end: 20120301

REACTIONS (5)
  - WITHDRAWAL SYNDROME [None]
  - BLOOD PRESSURE INCREASED [None]
  - NAUSEA [None]
  - HYPERHIDROSIS [None]
  - DRUG DIVERSION [None]
